FAERS Safety Report 4660954-5 (Version None)
Quarter: 2005Q2

REPORT INFORMATION
  Report Type: 
  Country: None (occurrence: None)
  Receive Date: 20050511
  Receipt Date: 20050429
  Transmission Date: 20051028
  Serious: Yes (Hospitalization, Other)
  Sender: FDA-Public Use
  Company Number: KII-2005-0016417

PATIENT
  Age: 55 Year
  Sex: Male

DRUGS (6)
  1. OXYCONTIN [Suspect]
     Dosage: ORAL
     Route: 048
  2. COCAINE (COCAINE) [Suspect]
  3. BENZODIAZEPINE DERIVATIVES [Suspect]
  4. OTHER HYPNOTICS AND SEDATIVES [Suspect]
  5. VALPROIC ACID [Suspect]
  6. AMPHETAMINE SULFATE TAB [Suspect]

REACTIONS (13)
  - AGGRESSION [None]
  - AGITATION [None]
  - BLOOD PRESSURE INCREASED [None]
  - DEPRESSED LEVEL OF CONSCIOUSNESS [None]
  - DRUG INEFFECTIVE [None]
  - DRUG WITHDRAWAL SYNDROME [None]
  - HYPERTENSION [None]
  - MULTIPLE DRUG OVERDOSE [None]
  - MUSCLE TWITCHING [None]
  - NAUSEA [None]
  - POLYSUBSTANCE ABUSE [None]
  - TACHYCARDIA [None]
  - YAWNING [None]
